FAERS Safety Report 7689781-1 (Version None)
Quarter: 2011Q3

REPORT INFORMATION
  Report Type: 
  Country: None (occurrence: None)
  Receive Date: 20110817
  Receipt Date: 20110804
  Transmission Date: 20111222
  Serious: Yes (Death)
  Sender: FDA-Public Use
  Company Number: JP-MYLANLABS-2011S1016513

PATIENT
  Age: 76 Year
  Sex: Male

DRUGS (1)
  1. PACLITAXEL [Suspect]
     Indication: MESOTHELIOMA MALIGNANT
     Route: 065

REACTIONS (1)
  - INTERSTITIAL LUNG DISEASE [None]
